FAERS Safety Report 22241362 (Version 2)
Quarter: 2023Q2

REPORT INFORMATION
  Report Type: Spontaneous
  Country: FR (occurrence: FR)
  Receive Date: 20230421
  Receipt Date: 20230628
  Transmission Date: 20230722
  Serious: Yes (Hospitalization)
  Sender: FDA-Public Use
  Company Number: FR-TEVA-2023-FR-2879861

PATIENT
  Age: 70 Year
  Sex: Male

DRUGS (1)
  1. DOXORUBICIN [Suspect]
     Active Substance: DOXORUBICIN
     Indication: Angiosarcoma
     Dosage: ONE CYCLE OF 50 MG/M2 THEN 5 CYCLES AT 60 MG/M2
     Route: 065

REACTIONS (2)
  - Pain [Unknown]
  - Blood disorder [Unknown]
